FAERS Safety Report 20089170 (Version 1)
Quarter: 2021Q4

REPORT INFORMATION
  Report Type: Spontaneous
  Country: GB (occurrence: GB)
  Receive Date: 20211119
  Receipt Date: 20211119
  Transmission Date: 20220303
  Serious: Yes (Other)
  Sender: FDA-Public Use
  Company Number: GB-LUPIN PHARMACEUTICALS INC.-2021-22178

PATIENT
  Sex: Male
  Weight: 1.164 kg

DRUGS (14)
  1. HYDROCORTISONE [Suspect]
     Active Substance: HYDROCORTISONE
     Indication: COVID-19
     Dosage: UNKNOWN, FOR 10 DAYS
     Route: 065
     Dates: start: 20210102
  2. BETAMETHASONE [Suspect]
     Active Substance: BETAMETHASONE
     Indication: Maternal therapy to enhance foetal lung maturity
     Dosage: UNK
     Route: 065
     Dates: start: 20210103
  3. PIPERACILLIN SODIUM\TAZOBACTAM SODIUM [Suspect]
     Active Substance: PIPERACILLIN SODIUM\TAZOBACTAM SODIUM
     Indication: Antibiotic therapy
     Dosage: UNK
     Route: 065
     Dates: start: 20210102
  4. CLINDAMYCIN [Suspect]
     Active Substance: CLINDAMYCIN
     Indication: Antibiotic therapy
     Dosage: UNK
     Route: 065
     Dates: start: 20210102
  5. METOPROLOL [Suspect]
     Active Substance: METOPROLOL
     Indication: Tachyarrhythmia
     Dosage: UNK
     Route: 065
     Dates: start: 20210108
  6. DIGOXIN [Suspect]
     Active Substance: DIGOXIN
     Indication: Tachyarrhythmia
     Dosage: UNK
     Route: 065
     Dates: start: 20210108
  7. FLECAINIDE [Suspect]
     Active Substance: FLECAINIDE
     Indication: Tachyarrhythmia
     Dosage: 150 MILLIGRAM
     Route: 042
     Dates: start: 20210108
  8. HEPARIN [Suspect]
     Active Substance: HEPARIN SODIUM
     Indication: Thrombosis
     Dosage: UNK, STARTED ON DAY 17
     Route: 065
     Dates: start: 20210108
  9. HEPARIN [Suspect]
     Active Substance: HEPARIN SODIUM
     Indication: Anticoagulant therapy
  10. LABETALOL [Suspect]
     Active Substance: LABETALOL\LABETALOL HYDROCHLORIDE
     Indication: Tachyarrhythmia
     Dosage: UNK
     Route: 065
     Dates: start: 202101
  11. AMIODARONE [Suspect]
     Active Substance: AMIODARONE
     Indication: Tachyarrhythmia
     Dosage: SINGLE DOSE
     Route: 042
     Dates: start: 20210116
  12. BISOPROLOL [Suspect]
     Active Substance: BISOPROLOL
     Indication: Tachyarrhythmia
     Dosage: UNK
     Route: 065
     Dates: start: 20210116
  13. MEROPENEM [Suspect]
     Active Substance: MEROPENEM
     Indication: Antibiotic therapy
     Dosage: UNK
     Route: 065
     Dates: start: 2021
  14. AMIKACIN [Suspect]
     Active Substance: AMIKACIN
     Indication: Antibiotic therapy
     Dosage: UNK
     Route: 065
     Dates: start: 2021

REACTIONS (3)
  - Foetal exposure during pregnancy [Unknown]
  - Premature baby [Unknown]
  - Low birth weight baby [Unknown]
